FAERS Safety Report 21927698 (Version 3)
Quarter: 2024Q2

REPORT INFORMATION
  Report Type: Spontaneous
  Country: US (occurrence: US)
  Receive Date: 20230130
  Receipt Date: 20240501
  Transmission Date: 20240716
  Serious: Yes (Other)
  Sender: FDA-Public Use
  Company Number: US-PFIZER INC-PV202300018576

PATIENT
  Age: 68 Year
  Sex: Male

DRUGS (1)
  1. INLYTA [Suspect]
     Active Substance: AXITINIB
     Indication: Renal cancer
     Dosage: 5 MG, (TAKE 1 TABLET BY MOUTH 2 TIMES DAILY)
     Route: 048
     Dates: start: 20221128

REACTIONS (7)
  - Seizure [Unknown]
  - Fatigue [Unknown]
  - Pruritus [Unknown]
  - Vertigo [Unknown]
  - Gait inability [Unknown]
  - Head injury [Unknown]
  - Fall [Unknown]
